FAERS Safety Report 21705939 (Version 1)
Quarter: 2022Q4

REPORT INFORMATION
  Report Type: Spontaneous
  Country: US (occurrence: None)
  Receive Date: 20221208
  Receipt Date: 20221208
  Transmission Date: 20230113
  Serious: No
  Sender: FDA-Public Use
  Company Number: None

PATIENT
  Age: 56 Year
  Sex: Female
  Weight: 67.5 kg

DRUGS (6)
  1. GABAPENTIN [Suspect]
     Active Substance: GABAPENTIN
     Indication: Back pain
     Dosage: OTHER QUANTITY : 1 CAPSULE(S);?FREQUENCY : EVERY 8 HOURS;?
     Route: 048
     Dates: start: 20221116, end: 20221204
  2. LOSARTAN [Concomitant]
     Active Substance: LOSARTAN
  3. COREG [Concomitant]
     Active Substance: CARVEDILOL
  4. TRAMADOL [Concomitant]
     Active Substance: TRAMADOL
  5. CULTURELLE [Concomitant]
     Active Substance: LACTOBACILLUS RHAMNOSUS
  6. CENTRUM MULTIVITAMIN FOR WOMEN OVER 50 [Concomitant]

REACTIONS (4)
  - Dizziness [None]
  - Vision blurred [None]
  - Epistaxis [None]
  - Drug ineffective [None]

NARRATIVE: CASE EVENT DATE: 20221202
